FAERS Safety Report 7283567-8 (Version None)
Quarter: 2011Q1

REPORT INFORMATION
  Report Type: 
  Country: None (occurrence: None)
  Receive Date: 20110209
  Receipt Date: 20110208
  Transmission Date: 20110831
  Serious: Yes (Death, Hospitalization)
  Sender: FDA-Public Use
  Company Number: A0788256A

PATIENT
  Age: 45 Year
  Sex: Female

DRUGS (2)
  1. METFORMIN HCL [Concomitant]
     Dosage: 100MG TWICE PER DAY
     Route: 048
     Dates: start: 20050306, end: 20070712
  2. AVANDIA [Suspect]
     Dosage: 4MG TWICE PER DAY
     Route: 048
     Dates: start: 20050315, end: 20070728

REACTIONS (2)
  - MYOCARDIAL INFARCTION [None]
  - DEATH [None]
